FAERS Safety Report 20582645 (Version 1)
Quarter: 2022Q1

REPORT INFORMATION
  Report Type: Spontaneous
  Country: IR (occurrence: IR)
  Receive Date: 20220311
  Receipt Date: 20220311
  Transmission Date: 20220423
  Serious: Yes (Other)
  Sender: FDA-Public Use
  Company Number: IR-Accord-257043

PATIENT
  Age: 54 Year
  Sex: Male

DRUGS (1)
  1. METHOTREXATE [Suspect]
     Active Substance: METHOTREXATE
     Indication: Central nervous system lymphoma
     Dosage: FIVE CYCLES OF HIGH-DOSE MTX (3.5  G/M2)

REACTIONS (1)
  - Cataract [Unknown]
